FAERS Safety Report 5670854-X (Version None)
Quarter: 2008Q1

REPORT INFORMATION
  Report Type: 
  Country: None (occurrence: None)
  Receive Date: 20080318
  Receipt Date: 20080307
  Transmission Date: 20080703
  Serious: Yes (Disabling, Other)
  Sender: FDA-Public Use
  Company Number: US-MERCK-0707USA05066

PATIENT
  Age: 67 Year
  Sex: Female

DRUGS (15)
  1. FOSAMAX [Suspect]
     Indication: PROPHYLAXIS
     Route: 048
     Dates: start: 20020312, end: 20050621
  2. FOSAMAX [Suspect]
     Route: 048
  3. ESTRADIOL [Concomitant]
     Route: 048
     Dates: start: 19850101, end: 20070201
  4. [THERAPY UNSPECIFIED] [Concomitant]
     Route: 065
     Dates: start: 19900101
  5. [THERAPY UNSPECIFIED] [Concomitant]
     Indication: RHEUMATOID ARTHRITIS
     Route: 065
  6. VAGIFEM [Concomitant]
     Route: 065
  7. METHOTREXATE [Concomitant]
     Indication: PSORIATIC ARTHROPATHY
     Route: 048
     Dates: start: 20010101, end: 20011201
  8. METHOTREXATE [Concomitant]
     Route: 048
     Dates: start: 20011201, end: 20030101
  9. CELEBREX [Concomitant]
     Route: 065
  10. PLAQUENIL [Concomitant]
     Route: 065
  11. FLEXERIL [Concomitant]
     Route: 065
  12. FOLIC ACID [Concomitant]
     Route: 065
  13. AMITRIPTYLINE HYDROCHLORIDE [Concomitant]
     Route: 065
  14. CALCIUM (UNSPECIFIED) [Concomitant]
     Route: 065
  15. VITAMINS (UNSPECIFIED) [Concomitant]
     Route: 065

REACTIONS (36)
  - ABDOMINAL PAIN LOWER [None]
  - ABDOMINAL PAIN UPPER [None]
  - ACTINIC KERATOSIS [None]
  - BACK INJURY [None]
  - BLOOD CHOLESTEROL INCREASED [None]
  - BLOOD PRESSURE INCREASED [None]
  - BLOOD TRIGLYCERIDES INCREASED [None]
  - BRONCHIAL HYPERREACTIVITY [None]
  - BRONCHITIS [None]
  - BURSITIS [None]
  - CANDIDIASIS [None]
  - CATARACT [None]
  - CEREBROVASCULAR ACCIDENT [None]
  - CYSTITIS [None]
  - DEPRESSION [None]
  - DIVERTICULUM [None]
  - EAR PAIN [None]
  - FALL [None]
  - GRAFT DYSFUNCTION [None]
  - HAEMATOMA [None]
  - HOT FLUSH [None]
  - HYPERKERATOSIS [None]
  - HYPERSENSITIVITY [None]
  - INCONTINENCE [None]
  - INFLAMMATORY BOWEL DISEASE [None]
  - INFLUENZA [None]
  - INTESTINAL POLYP [None]
  - MUSCLE STRAIN [None]
  - NASOPHARYNGITIS [None]
  - NIGHT SWEATS [None]
  - OSTEONECROSIS [None]
  - OVERDOSE [None]
  - ROAD TRAFFIC ACCIDENT [None]
  - URINE ODOUR ABNORMAL [None]
  - VAGINAL HAEMORRHAGE [None]
  - WRIST FRACTURE [None]
